FAERS Safety Report 24376861 (Version 1)
Quarter: 2024Q3

REPORT INFORMATION
  Report Type: Spontaneous
  Country: RU (occurrence: RU)
  Receive Date: 20240930
  Receipt Date: 20240930
  Transmission Date: 20241016
  Serious: Yes (Other)
  Sender: ROCHE
  Company Number: RU-ROCHE-10000087773

PATIENT
  Age: 73 Year
  Sex: Female

DRUGS (1)
  1. ALECENSA [Suspect]
     Active Substance: ALECTINIB HYDROCHLORIDE
     Indication: Lung neoplasm malignant
     Route: 065
     Dates: start: 201906

REACTIONS (3)
  - Neoplasm progression [Unknown]
  - Arteriosclerosis coronary artery [Unknown]
  - Myocardial ischaemia [Unknown]
